FAERS Safety Report 7954062-5 (Version None)
Quarter: 2011Q4

REPORT INFORMATION
  Report Type: 
  Country: None (occurrence: None)
  Receive Date: 20111129
  Receipt Date: 20111126
  Transmission Date: 20120403
  Serious: No
  Sender: FDA-Public Use
  Company Number: 2011-01317

PATIENT
  Age: 32 Year
  Sex: Male

DRUGS (2)
  1. ZICAM INTENSE SINUS RELIEF NASAL GEL [Suspect]
     Indication: SINUS DISORDER
     Dosage: PER PRODUCT LABELING
     Dates: start: 20111124, end: 20111126
  2. AMBIEN PRN [Concomitant]

REACTIONS (1)
  - ANOSMIA [None]
